FAERS Safety Report 5740411-5 (Version None)
Quarter: 2008Q2

REPORT INFORMATION
  Report Type: 
  Country: None (occurrence: None)
  Receive Date: 20080516
  Receipt Date: 20080507
  Transmission Date: 20081010
  Serious: Yes (Death, Hospitalization)
  Sender: FDA-Public Use
  Company Number: HU-ELI_LILLY_AND_COMPANY-HU200801006064

PATIENT
  Age: 67 Year
  Sex: Male

DRUGS (3)
  1. PEMETREXED [Suspect]
     Indication: NEOPLASM
     Dosage: 800 MG/M2, OTHER
     Route: 042
     Dates: start: 20080114
  2. PEMETREXED [Suspect]
     Dosage: 500 MG/M2, UNKNOWN
     Route: 065
     Dates: start: 20080225
  3. PEMETREXED [Suspect]
     Dosage: 500 MG/M2, UNKNOWN
     Route: 065
     Dates: start: 20080325

REACTIONS (3)
  - PNEUMONIA [None]
  - PYREXIA [None]
  - RASH [None]
